FAERS Safety Report 10916131 (Version 1)
Quarter: 2015Q1

REPORT INFORMATION
  Report Type: Spontaneous
  Country: US (occurrence: None)
  Receive Date: 20150312
  Receipt Date: 20150312
  Transmission Date: 20150721
  Serious: No
  Sender: FDA-Public Use
  Company Number: None

PATIENT
  Age: 66 Year
  Sex: Female
  Weight: 57.15 kg

DRUGS (3)
  1. LEVAQUIN [Suspect]
     Active Substance: LEVOFLOXACIN
     Indication: INFECTION
     Route: 048
     Dates: start: 20100113, end: 20100117
  2. HYDRAZINE [Concomitant]
     Active Substance: HYDRAZINE SULFATE
  3. DIVALPROEX ER [Concomitant]
     Active Substance: DIVALPROEX SODIUM

REACTIONS (2)
  - Loss of consciousness [None]
  - Seizure [None]

NARRATIVE: CASE EVENT DATE: 2010
